FAERS Safety Report 8362827-3 (Version None)
Quarter: 2012Q2

REPORT INFORMATION
  Report Type: 
  Country: None (occurrence: None)
  Receive Date: 20120516
  Receipt Date: 20120509
  Transmission Date: 20120825
  Serious: Yes (Hospitalization, Other)
  Sender: FDA-Public Use
  Company Number: PHHY2012FR040721

PATIENT
  Age: 51 Year
  Sex: Male

DRUGS (3)
  1. KEPPRA [Suspect]
     Dosage: 500 MG, BID
     Route: 048
  2. TEGRETOL [Suspect]
     Dosage: 400 MG, BID
     Route: 048
     Dates: start: 20110802, end: 20111102
  3. DEPAKENE [Suspect]
     Dosage: 500 MG, BID
     Route: 048
     Dates: end: 20110801

REACTIONS (16)
  - HYPERVOLAEMIA [None]
  - PLEURAL EFFUSION [None]
  - SYSTEMIC INFLAMMATORY RESPONSE SYNDROME [None]
  - TUBULOINTERSTITIAL NEPHRITIS [None]
  - PYREXIA [None]
  - NEPHROTIC SYNDROME [None]
  - GLOMERULONEPHRITIS [None]
  - PERICARDIAL EFFUSION [None]
  - GENERAL PHYSICAL CONDITION ABNORMAL [None]
  - TRANSAMINASES INCREASED [None]
  - ASCITES [None]
  - RENAL HYPERTROPHY [None]
  - OEDEMA PERIPHERAL [None]
  - CHOLESTASIS [None]
  - RENAL FAILURE [None]
  - RENAL TUBULAR NECROSIS [None]
